FAERS Safety Report 4472192-X (Version None)
Quarter: 2004Q4

REPORT INFORMATION
  Report Type: 
  Country: None (occurrence: None)
  Receive Date: 20041012
  Receipt Date: 20041004
  Transmission Date: 20050328
  Serious: Yes (Hospitalization)
  Sender: FDA-Public Use
  Company Number: NZ-MERCK-0410NZL00027

PATIENT
  Age: 58 Year
  Sex: Male
  Weight: 97 kg

DRUGS (2)
  1. VIOXX [Suspect]
     Route: 065
     Dates: start: 20000101
  2. SULFASALAZINE [Concomitant]
     Route: 065

REACTIONS (1)
  - MYOCARDIAL INFARCTION [None]
